FAERS Safety Report 16368426 (Version 1)
Quarter: 2019Q2

REPORT INFORMATION
  Report Type: Report from Study
  Country: ES (occurrence: ES)
  Receive Date: 20190529
  Receipt Date: 20190529
  Transmission Date: 20190711
  Serious: Yes (Hospitalization)
  Sender: FDA-Public Use
  Company Number: ES-TEVA-2019-ES-1055243

PATIENT
  Age: 77 Year
  Sex: Female

DRUGS (6)
  1. IBUPROFENO (1769A) [Interacting]
     Active Substance: IBUPROFEN
     Indication: TOOTHACHE
     Dosage: 1.8 MG PER 1 DAY
     Route: 048
     Dates: start: 20190128, end: 20190129
  2. HIDRALAZINA HIDROCLORURO (1720CH) [Concomitant]
     Indication: HYPERTENSION
     Dosage: 1.5 MG PER 1 DAY
     Route: 048
     Dates: start: 201810
  3. ATORVASTATINA (7400A) [Concomitant]
     Active Substance: ATORVASTATIN
     Indication: DYSLIPIDAEMIA
     Dosage: 20MG PER 1 DAY
     Route: 048
     Dates: start: 201002
  4. ALDACTONE [Interacting]
     Active Substance: SPIRONOLACTONE
     Indication: CARDIAC FAILURE CONGESTIVE
     Dosage: 25 MG PER 1 DAY
     Route: 048
     Dates: start: 201612, end: 20190129
  5. LOSARTAN (7157A) [Suspect]
     Active Substance: LOSARTAN
     Indication: HYPERTENSION
     Dosage: 25MG PER 1 DAY
     Route: 048
     Dates: start: 201108, end: 20190129
  6. FUROSEMIDA (1615A) [Interacting]
     Active Substance: FUROSEMIDE
     Indication: HYPERTENSION
     Dosage: 80MG PER 1 DAY
     Route: 048
     Dates: start: 201205

REACTIONS (3)
  - Drug interaction [Unknown]
  - Acute kidney injury [Recovered/Resolved]
  - Hyperkalaemia [Recovered/Resolved]

NARRATIVE: CASE EVENT DATE: 20190129
